FAERS Safety Report 24689597 (Version 1)
Quarter: 2024Q4

REPORT INFORMATION
  Report Type: Spontaneous
  Country: JP (occurrence: JP)
  Receive Date: 20241203
  Receipt Date: 20241203
  Transmission Date: 20250114
  Serious: Yes (Hospitalization, Other)
  Sender: RANBAXY
  Company Number: JP-SUN PHARMACEUTICAL INDUSTRIES LTD-2024R1-482115

PATIENT
  Sex: Male

DRUGS (6)
  1. AMANTADINE [Suspect]
     Active Substance: AMANTADINE
     Indication: Orthostatic hypotension
     Dosage: UNK
     Route: 065
  2. DROXIDOPA [Suspect]
     Active Substance: DROXIDOPA
     Indication: Orthostatic hypotension
     Dosage: UNK
     Route: 065
  3. ENTACAPONE [Suspect]
     Active Substance: ENTACAPONE
     Indication: Parkinson^s disease
     Dosage: 600 MILLIGRAM, QD
     Route: 065
  4. ENTACAPONE [Suspect]
     Active Substance: ENTACAPONE
     Dosage: 1000 MILLIGRAM, QD
     Route: 065
  5. LEVODOPA [Suspect]
     Active Substance: LEVODOPA
     Indication: Parkinson^s disease
     Dosage: 600 MILLIGRAM, QD
     Route: 065
  6. LEVODOPA [Suspect]
     Active Substance: LEVODOPA
     Dosage: 1000 MILLIGRAM, QD
     Route: 065

REACTIONS (4)
  - Delirium [Unknown]
  - Epilepsy [Unknown]
  - Parkinsonism [Unknown]
  - Toxicity to various agents [Unknown]
